FAERS Safety Report 4682087-4 (Version None)
Quarter: 2005Q2

REPORT INFORMATION
  Report Type: 
  Country: None (occurrence: None)
  Receive Date: 20050602
  Receipt Date: 20050518
  Transmission Date: 20051028
  Serious: Yes (Other)
  Sender: FDA-Public Use
  Company Number: 212623

PATIENT
  Age: 53 Year
  Sex: Female

DRUGS (1)
  1. RITUXAN [Suspect]
     Indication: NON-HODGKIN'S LYMPHOMA
     Dosage: 540 MG,  INTRAVENOUS
     Route: 042
     Dates: start: 20041125

REACTIONS (5)
  - BLOOD CREATININE DECREASED [None]
  - DISSEMINATED INTRAVASCULAR COAGULATION [None]
  - PYREXIA [None]
  - SHOCK [None]
  - WHITE BLOOD CELL COUNT INCREASED [None]
